FAERS Safety Report 17699715 (Version 1)
Quarter: 2020Q2

REPORT INFORMATION
  Report Type: Report from Study
  Country: CA (occurrence: CA)
  Receive Date: 20200423
  Receipt Date: 20200423
  Transmission Date: 20200714
  Serious: No
  Sender: FDA-Public Use
  Company Number: CA-JNJFOC-20200228717

PATIENT
  Sex: Female
  Weight: 62 kg

DRUGS (1)
  1. REMICADE [Suspect]
     Active Substance: INFLIXIMAB
     Indication: COLITIS ULCERATIVE
     Dosage: LAST DATE THAT THE PATIENT RECEIVED HER 400 MG INTRAVENOUS REMICADE WAS ON 15-APR-2020.
     Route: 042
     Dates: start: 20090519

REACTIONS (2)
  - Neoplasm skin [Not Recovered/Not Resolved]
  - Dysplastic naevus [Unknown]
